FAERS Safety Report 6185599-X (Version None)
Quarter: 2009Q2

REPORT INFORMATION
  Report Type: 
  Country: None (occurrence: None)
  Receive Date: 20090511
  Receipt Date: 20090430
  Transmission Date: 20091009
  Serious: Yes (Other)
  Sender: FDA-Public Use
  Company Number: DE-TEVA-186179ISR

PATIENT
  Sex: Male

DRUGS (4)
  1. FOLINIC ACID [Suspect]
     Indication: COLON CANCER
     Route: 042
  2. FLUOROURACIL W/FOLINIC ACID/IRINOTECAN [Concomitant]
     Indication: COLON CANCER
     Route: 042
  3. METOCLOPRAMIDE [Concomitant]
  4. CLEMASTINE [Concomitant]

REACTIONS (5)
  - COLD SWEAT [None]
  - HYPERHIDROSIS [None]
  - HYPERTENSION [None]
  - TACHYCARDIA [None]
  - TREMOR [None]
